FAERS Safety Report 24076157 (Version 1)
Quarter: 2024Q3

REPORT INFORMATION
  Report Type: Spontaneous
  Country: US (occurrence: US)
  Receive Date: 20240710
  Receipt Date: 20240710
  Transmission Date: 20241017
  Serious: Yes (Death, Other)
  Sender: BRISTOL MYERS SQUIBB
  Company Number: US-BRISTOL-MYERS SQUIBB COMPANY-2024-109497

PATIENT
  Age: 89 Year
  Sex: Male
  Weight: 83.5 kg

DRUGS (1)
  1. REVLIMID [Suspect]
     Active Substance: LENALIDOMIDE
     Indication: Myelodysplastic syndrome
     Dosage: TAKE 1 CAPSULE EVERY 3 DAYS FOR 21 DAYS, THEN 7 DAYS OFF
     Route: 048
     Dates: start: 20230801

REACTIONS (2)
  - Death [Fatal]
  - Off label use [Unknown]
